FAERS Safety Report 9372234 (Version 1)
Quarter: 2013Q2

REPORT INFORMATION
  Report Type: Spontaneous
  Country: US (occurrence: US)
  Receive Date: 20130627
  Receipt Date: 20130627
  Transmission Date: 20140414
  Serious: Yes (Other)
  Sender: FDA-Public Use
  Company Number: US-BAYER-2013-076051

PATIENT
  Age: 24 Year
  Sex: Male

DRUGS (8)
  1. DACARBAZINE [Suspect]
     Indication: HODGKIN^S DISEASE NODULAR SCLEROSIS STAGE II
  2. ADRIAMYCIN [Suspect]
     Indication: HODGKIN^S DISEASE NODULAR SCLEROSIS STAGE II
  3. BLEOMYCIN [Suspect]
     Indication: HODGKIN^S DISEASE NODULAR SCLEROSIS STAGE II
  4. VINBLASTINE [Suspect]
     Indication: HODGKIN^S DISEASE NODULAR SCLEROSIS STAGE II
  5. BICNU [Suspect]
     Indication: HODGKIN^S DISEASE NODULAR SCLEROSIS STAGE II
  6. ETOPOSIDE [Suspect]
     Indication: HODGKIN^S DISEASE NODULAR SCLEROSIS STAGE II
  7. CYTOSINE ARABINOSIDE [Suspect]
     Indication: HODGKIN^S DISEASE NODULAR SCLEROSIS STAGE II
  8. MELPHALAN [Suspect]
     Indication: HODGKIN^S DISEASE NODULAR SCLEROSIS STAGE II

REACTIONS (5)
  - Radiation pneumonitis [None]
  - Cough [None]
  - Dyspnoea exertional [None]
  - Radiation fibrosis [None]
  - Lung disorder [None]
